FAERS Safety Report 7272424-9 (Version None)
Quarter: 2011Q1

REPORT INFORMATION
  Report Type: 
  Country: None (occurrence: None)
  Receive Date: 20110203
  Receipt Date: 20101216
  Transmission Date: 20110831
  Serious: Yes (Other)
  Sender: FDA-Public Use
  Company Number: US-BAYER-201020636NA

PATIENT
  Sex: Female

DRUGS (10)
  1. YAZ [Suspect]
     Indication: PRODUCT USED FOR UNKNOWN INDICATION
     Route: 048
     Dates: start: 20080101
  2. AZITHROMYCIN [Concomitant]
     Dosage: 250 MG, UNK
     Dates: end: 20060101
  3. ZYRTEC [Concomitant]
     Dosage: 10 MG, UNK
     Dates: end: 20071101
  4. CIPROFLOXACIN [Concomitant]
     Dosage: 500 MG, UNK
     Dates: end: 20071001
  5. PALGIC D [Concomitant]
     Dosage: 4 MG, UNK
     Dates: end: 20051201
  6. BROMPHENIRAMINE [Concomitant]
     Dosage: 6 MG, UNK
     Dates: end: 20070801
  7. ACETAMINOPHEN W/ CODEINE [Concomitant]
     Dosage: UNK
     Dates: end: 20061201
  8. VERAMYST [Concomitant]
     Dosage: UNK
     Dates: end: 20071101
  9. AZITHROMYCIN [Concomitant]
     Dosage: 250 MG, UNK
     Dates: end: 20050101
  10. AVELOX [Concomitant]
     Dosage: 400 MG, UNK
     Dates: end: 20070801

REACTIONS (1)
  - GALLBLADDER INJURY [None]
